FAERS Safety Report 13455668 (Version 1)
Quarter: 2017Q2

REPORT INFORMATION
  Report Type: Spontaneous
  Country: US (occurrence: US)
  Receive Date: 20170418
  Receipt Date: 20170418
  Transmission Date: 20170830
  Serious: Yes (Other)
  Sender: FDA-Public Use
  Company Number: US-BAXALTA-2017BLT003089

PATIENT
  Age: 60 Year
  Sex: Female
  Weight: 113.38 kg

DRUGS (5)
  1. BACTRIM [Suspect]
     Active Substance: SULFAMETHOXAZOLE\TRIMETHOPRIM
     Indication: KIDNEY INFECTION
     Dosage: UNK
     Route: 048
     Dates: start: 20170406
  2. CUVITRU [Suspect]
     Active Substance: HUMAN IMMUNOGLOBULIN G
     Dosage: UNK
     Route: 058
     Dates: start: 20170406
  3. CUVITRU [Suspect]
     Active Substance: HUMAN IMMUNOGLOBULIN G
     Dosage: UNK
     Route: 058
     Dates: start: 20170314
  4. CUVITRU [Suspect]
     Active Substance: HUMAN IMMUNOGLOBULIN G
     Dosage: 25 G, EVERY 2 WK
     Route: 058
     Dates: start: 20170406
  5. CUVITRU [Suspect]
     Active Substance: HUMAN IMMUNOGLOBULIN G
     Indication: HYPOGAMMAGLOBULINAEMIA
     Dosage: 25 G, EVERY 2 WK
     Route: 058
     Dates: start: 20170314

REACTIONS (2)
  - Kidney infection [Unknown]
  - Urticaria [Unknown]

NARRATIVE: CASE EVENT DATE: 20170406
